FAERS Safety Report 10711683 (Version 1)
Quarter: 2015Q1

REPORT INFORMATION
  Report Type: Spontaneous
  Country: MX (occurrence: MX)
  Receive Date: 20150114
  Receipt Date: 20150114
  Transmission Date: 20150721
  Serious: Yes (Other)
  Sender: FDA-Public Use
  Company Number: PHHY2014MX049925

PATIENT
  Sex: Female

DRUGS (4)
  1. TEGRETOL [Suspect]
     Active Substance: CARBAMAZEPINE
     Dosage: 1 DF, TID (ONE TABLET IN THE MORNING, AFTERNOON AND NIGHT)
     Route: 048
  2. TOPAMAX [Concomitant]
     Active Substance: TOPIRAMATE
     Dosage: 1.25 DF, BID (1.25 TABLETS (EACH OF 25 MG), IN THE MORNING AND NIGHT)
     Route: 048
     Dates: start: 198207, end: 201402
  3. TOPAMAX [Concomitant]
     Active Substance: TOPIRAMATE
     Indication: PRODUCT USED FOR UNKNOWN INDICATION
     Dosage: UNK
     Route: 065
  4. TEGRETOL [Suspect]
     Active Substance: CARBAMAZEPINE
     Indication: PRODUCT USED FOR UNKNOWN INDICATION
     Dosage: 600 MG, UNK
     Route: 048
     Dates: start: 201402

REACTIONS (5)
  - Maternal exposure during pregnancy [Unknown]
  - Abortion threatened [Unknown]
  - Premature delivery [Unknown]
  - Haemorrhage in pregnancy [Unknown]
  - Premature rupture of membranes [Unknown]
